FAERS Safety Report 26043386 (Version 1)
Quarter: 2025Q4

REPORT INFORMATION
  Report Type: Report from Study
  Country: GB (occurrence: GB)
  Receive Date: 20251113
  Receipt Date: 20251113
  Transmission Date: 20260117
  Serious: Yes (Other)
  Sender: ABBVIE
  Company Number: GB-ABBVIE-6546964

PATIENT
  Age: 63 Year
  Sex: Male

DRUGS (2)
  1. SKYRIZI [Suspect]
     Active Substance: RISANKIZUMAB-RZAA
     Indication: Psoriasis
     Dosage: SKYRIZI 150MG/1ML SOLUTION FOR INJECTION PRE-FILLED PENS (ABBVIE LTD) 1 PRE-FILLED DISPOSABLE INJ...
     Route: 058
     Dates: start: 20251013
  2. SKYRIZI [Suspect]
     Active Substance: RISANKIZUMAB-RZAA
     Dosage: SKYRIZI 150MG/1ML SOLUTION FOR INJECTION PRE-FILLED PENS (ABBVIE LTD) 1 PRE-FILLED DISPOSABLE INJ...
     Route: 058

REACTIONS (1)
  - Precancerous condition [Unknown]

NARRATIVE: CASE EVENT DATE: 20250101
